FAERS Safety Report 13362108 (Version 3)
Quarter: 2017Q2

REPORT INFORMATION
  Report Type: Spontaneous
  Country: US (occurrence: US)
  Receive Date: 20170323
  Receipt Date: 20170602
  Transmission Date: 20170830
  Serious: No
  Sender: FDA-Public Use
  Company Number: US-GLAXOSMITHKLINE-US2017039506

PATIENT
  Age: 70 Year
  Sex: Female

DRUGS (1)
  1. ANORO ELLIPTA [Suspect]
     Active Substance: UMECLIDINIUM BROMIDE\VILANTEROL TRIFENATATE
     Indication: BRONCHITIS CHRONIC
     Dosage: 1 PUFF(S), 1D
     Route: 055
     Dates: end: 201702

REACTIONS (9)
  - Nausea [Recovered/Resolved]
  - Nasal dryness [Recovered/Resolved]
  - Headache [Recovered/Resolved]
  - Product quality issue [Unknown]
  - Dysphonia [Recovered/Resolved]
  - Oral discomfort [Recovered/Resolved]
  - Oropharyngeal pain [Recovered/Resolved]
  - Tongue discomfort [Recovered/Resolved]
  - Epistaxis [Recovered/Resolved]

NARRATIVE: CASE EVENT DATE: 201702
